FAERS Safety Report 17793014 (Version 1)
Quarter: 2020Q2

REPORT INFORMATION
  Report Type: Spontaneous
  Country: CA (occurrence: CA)
  Receive Date: 20200515
  Receipt Date: 20200515
  Transmission Date: 20200714
  Serious: Yes (Other)
  Sender: FDA-Public Use
  Company Number: CA-SA-2020SA123123

PATIENT
  Sex: Female

DRUGS (14)
  1. HYDROXYCHLOROQUINE SULFATE. [Suspect]
     Active Substance: HYDROXYCHLOROQUINE SULFATE
     Indication: RHEUMATOID ARTHRITIS
     Dosage: 1 EVERY 1 DAY
     Route: 065
  2. FENTANYL. [Concomitant]
     Active Substance: FENTANYL
     Indication: RHEUMATOID ARTHRITIS
  3. FOLIC ACID. [Concomitant]
     Active Substance: FOLIC ACID
     Indication: RHEUMATOID ARTHRITIS
  4. VITAMIN D [COLECALCIFEROL] [Concomitant]
     Active Substance: CHOLECALCIFEROL
  5. ADALIMUMAB [Suspect]
     Active Substance: ADALIMUMAB
     Indication: RHEUMATOID ARTHRITIS
     Dosage: 1 DF
     Route: 058
  6. MAGNESIUM [Concomitant]
     Active Substance: MAGNESIUM
  7. POTASSIUM [Concomitant]
     Active Substance: POTASSIUM
  8. ARAVA [Suspect]
     Active Substance: LEFLUNOMIDE
     Indication: RHEUMATOID ARTHRITIS
     Dosage: 1 EVERY 1 DAY
     Route: 065
  9. METHOTREXATE. [Suspect]
     Active Substance: METHOTREXATE
     Indication: RHEUMATOID ARTHRITIS
     Dosage: 1 EVERY 1 WEEK
     Route: 065
  10. CALCIUM [Concomitant]
     Active Substance: CALCIUM
  11. NAPROXEN SODIUM. [Concomitant]
     Active Substance: NAPROXEN SODIUM
     Indication: RHEUMATOID ARTHRITIS
  12. HYDROXYCHLOROQUINE SULFATE. [Suspect]
     Active Substance: HYDROXYCHLOROQUINE SULFATE
     Dosage: 2 EVERY 1 DAY
     Route: 065
  13. PANTOPRAZOLE [Concomitant]
     Active Substance: PANTOPRAZOLE
     Indication: RHEUMATOID ARTHRITIS
  14. TRAMADOL. [Concomitant]
     Active Substance: TRAMADOL
     Indication: RHEUMATOID ARTHRITIS

REACTIONS (10)
  - Arthralgia [Not Recovered/Not Resolved]
  - Joint swelling [Not Recovered/Not Resolved]
  - Leukopenia [Not Recovered/Not Resolved]
  - Fatigue [Not Recovered/Not Resolved]
  - Nausea [Not Recovered/Not Resolved]
  - Vomiting [Not Recovered/Not Resolved]
  - Drug ineffective [Unknown]
  - Peripheral swelling [Not Recovered/Not Resolved]
  - Pain in extremity [Not Recovered/Not Resolved]
  - Weight decreased [Not Recovered/Not Resolved]
